FAERS Safety Report 8196681-X (Version None)
Quarter: 2012Q1

REPORT INFORMATION
  Report Type: 
  Country: None (occurrence: None)
  Receive Date: 20120309
  Receipt Date: 20120301
  Transmission Date: 20120608
  Serious: Yes (Other)
  Sender: FDA-Public Use
  Company Number: US-BAYER-2011-076236

PATIENT
  Age: 35 Year
  Sex: Female
  Weight: 54.422 kg

DRUGS (12)
  1. YASMIN [Suspect]
     Indication: ACNE
     Dosage: UNK
     Dates: start: 20070401, end: 20080201
  2. DILAUDID [Concomitant]
     Indication: ABDOMINAL PAIN
  3. YAZ [Suspect]
     Indication: ACNE
     Dosage: UNK
     Dates: start: 20070401, end: 20080201
  4. DARVOCET [Concomitant]
  5. PROTONIX [Concomitant]
  6. TYLENOL W/ CODEINE NO. 3 [Concomitant]
  7. BACTRIM [Concomitant]
  8. DEMEROL [Concomitant]
  9. CODEINE SULFATE [Concomitant]
     Indication: PAIN
  10. ALBUTEROL [Concomitant]
     Route: 055
  11. PHENERGAN [Concomitant]
  12. NUVARING [Concomitant]

REACTIONS (9)
  - NAUSEA [None]
  - ANXIETY [None]
  - PSYCHOLOGICAL TRAUMA [None]
  - GALLBLADDER NON-FUNCTIONING [None]
  - VOMITING [None]
  - PAIN [None]
  - EMOTIONAL DISTRESS [None]
  - INJURY [None]
  - FEAR OF DISEASE [None]
